FAERS Safety Report 8124706-6 (Version None)
Quarter: 2012Q1

REPORT INFORMATION
  Report Type: 
  Country: None (occurrence: None)
  Receive Date: 20120209
  Receipt Date: 20120201
  Transmission Date: 20120608
  Serious: Yes (Life-Threatening)
  Sender: FDA-Public Use
  Company Number: GB-CELGENEUS-167-21880-12020213

PATIENT
  Age: 71 Year
  Sex: Male
  Weight: 77 kg

DRUGS (10)
  1. TRANSFUSIONS [Concomitant]
     Route: 065
     Dates: start: 20111005, end: 20111005
  2. REVLIMID [Suspect]
     Indication: MULTIPLE MYELOMA
     Dosage: 7.5 MILLIGRAM
     Route: 048
     Dates: start: 20110809
  3. THALIDOMIDE [Suspect]
     Indication: MULTIPLE MYELOMA
     Dosage: 50 MILLIGRAM
     Route: 048
     Dates: start: 20110118
  4. REVLIMID [Suspect]
     Dosage: 7.5 MILLIGRAM
     Route: 048
     Dates: end: 20111217
  5. VELCADE [Suspect]
     Indication: MULTIPLE MYELOMA
     Dosage: 2.5 MILLIGRAM
     Route: 041
     Dates: start: 20110204, end: 20110808
  6. DEXAMETHASONE [Suspect]
     Indication: MULTIPLE MYELOMA
     Dosage: 20 MILLIGRAM
     Route: 048
     Dates: start: 20110118, end: 20110808
  7. TRANSFUSIONS [Concomitant]
     Route: 065
     Dates: start: 20111118, end: 20111118
  8. CYCLOPHOSPHAMIDE [Suspect]
     Indication: MULTIPLE MYELOMA
     Dosage: 300 MILLIGRAM
     Route: 048
     Dates: start: 20110211, end: 20110808
  9. TRANSFUSIONS [Concomitant]
     Route: 065
     Dates: start: 20111228, end: 20111228
  10. TRANSFUSIONS [Concomitant]
     Route: 065
     Dates: start: 20120124, end: 20120124

REACTIONS (1)
  - GASTROINTESTINAL STROMAL TUMOUR [None]
